FAERS Safety Report 8005488-5 (Version None)
Quarter: 2011Q4

REPORT INFORMATION
  Report Type: 
  Country: None (occurrence: None)
  Receive Date: 20111223
  Receipt Date: 20111201
  Transmission Date: 20120403
  Serious: Yes (Other)
  Sender: FDA-Public Use
  Company Number: PL-ROCHE-1006166

PATIENT
  Sex: Male

DRUGS (7)
  1. RANIBIZUMAB [Suspect]
     Dosage: REGIMEN 3
     Route: 050
  2. RANIBIZUMAB [Suspect]
     Dosage: REGIMEN 2
     Route: 050
  3. RANIBIZUMAB [Suspect]
     Dosage: REGIMEN 3
     Route: 050
     Dates: start: 20090101
  4. BEVACIZUMAB [Suspect]
     Dosage: REGIMEN 2
     Route: 050
     Dates: start: 20091001
  5. BEVACIZUMAB [Suspect]
     Indication: AGE-RELATED MACULAR DEGENERATION
     Dosage: REGIMEN 1
     Route: 050
     Dates: start: 20090601
  6. RANIBIZUMAB [Suspect]
     Indication: AGE-RELATED MACULAR DEGENERATION
     Route: 050
     Dates: start: 20080901
  7. BEVACIZUMAB [Suspect]
     Dosage: REGIMEN 3
     Route: 050

REACTIONS (4)
  - DETACHMENT OF RETINAL PIGMENT EPITHELIUM [None]
  - CHOROIDAL NEOVASCULARISATION [None]
  - VISUAL ACUITY REDUCED [None]
  - RETINAL PIGMENT EPITHELIAL TEAR [None]
